FAERS Safety Report 7481445-2 (Version None)
Quarter: 2011Q2

REPORT INFORMATION
  Report Type: 
  Country: None (occurrence: None)
  Receive Date: 20110516
  Receipt Date: 20110505
  Transmission Date: 20111010
  Serious: Yes (Death, Hospitalization)
  Sender: FDA-Public Use
  Company Number: SE-TEVA-280961ISR

PATIENT
  Sex: Female

DRUGS (16)
  1. AVASTIN [Suspect]
     Route: 042
     Dates: start: 20110201
  2. CELEBREX [Concomitant]
     Route: 048
  3. HERACILLIN [Concomitant]
  4. MORFIN [Concomitant]
  5. TRYPTIZOL [Concomitant]
  6. IRINOTECAN HCL [Suspect]
     Route: 042
     Dates: start: 20101020, end: 20110302
  7. MOVIPREP [Concomitant]
  8. KALCIPOS [Concomitant]
  9. ALVEDON [Concomitant]
  10. GABAPENTIN ACTAVIS [Concomitant]
  11. BETAPRED [Concomitant]
     Route: 048
  12. INDERAL [Concomitant]
  13. AVASTIN [Suspect]
     Route: 042
     Dates: start: 20100120
  14. FLUKONAZOL MEDARTUUM [Concomitant]
  15. OMEPRAZOL ACTAVIS [Concomitant]
     Route: 048
  16. METADON DNE [Concomitant]

REACTIONS (1)
  - BRAIN STEM HAEMORRHAGE [None]
